FAERS Safety Report 25699370 (Version 1)
Quarter: 2025Q3

REPORT INFORMATION
  Report Type: Spontaneous
  Country: EU (occurrence: EU)
  Receive Date: 20250819
  Receipt Date: 20250819
  Transmission Date: 20251020
  Serious: Yes (Congenital Anomaly)
  Sender: RANBAXY
  Company Number: EU-EMB-M202004491-1

PATIENT
  Sex: Male
  Weight: 4.6 kg

DRUGS (5)
  1. PANTOPRAZOLE SODIUM [Suspect]
     Active Substance: PANTOPRAZOLE SODIUM
     Indication: Morning sickness
     Route: 064
  2. DIMENHYDRINATE [Suspect]
     Active Substance: DIMENHYDRINATE
     Indication: Morning sickness
     Route: 064
  3. OMEPRAZOLE [Suspect]
     Active Substance: OMEPRAZOLE
     Indication: Morning sickness
     Route: 064
  4. MECLIZINE HYDROCHLORIDE [Suspect]
     Active Substance: MECLIZINE HYDROCHLORIDE
     Indication: Morning sickness
     Route: 064
     Dates: start: 202004, end: 202005
  5. ACETAMINOPHEN [Concomitant]
     Active Substance: ACETAMINOPHEN
     Indication: Migraine
     Route: 064

REACTIONS (3)
  - Congenital eye disorder [Unknown]
  - Renal fusion anomaly [Unknown]
  - Foetal exposure during pregnancy [Unknown]
